FAERS Safety Report 13787910 (Version 1)
Quarter: 2017Q3

REPORT INFORMATION
  Report Type: Spontaneous
  Country: US (occurrence: US)
  Receive Date: 20170725
  Receipt Date: 20170725
  Transmission Date: 20171127
  Serious: No
  Sender: FDA-Public Use
  Company Number: US-BIOGEN-2017BI00434086

PATIENT
  Age: 52 Year
  Sex: Female

DRUGS (1)
  1. TECFIDERA [Suspect]
     Active Substance: DIMETHYL FUMARATE
     Indication: MULTIPLE SCLEROSIS
     Route: 065

REACTIONS (8)
  - Varicella [Unknown]
  - Infectious mononucleosis [Unknown]
  - Decreased immune responsiveness [Unknown]
  - Weight increased [Unknown]
  - Central nervous system lesion [Unknown]
  - Gait disturbance [Unknown]
  - Pneumonia [Unknown]
  - Exercise tolerance decreased [Unknown]
